FAERS Safety Report 10984294 (Version 1)
Quarter: 2015Q2

REPORT INFORMATION
  Report Type: Spontaneous
  Country: IT (occurrence: IT)
  Receive Date: 20150403
  Receipt Date: 20150403
  Transmission Date: 20150821
  Serious: Yes (Other)
  Sender: FDA-Public Use
  Company Number: IT-ABBVIE-15K-083-1368289-00

PATIENT
  Age: 38 Year
  Sex: Male

DRUGS (1)
  1. HUMIRA [Suspect]
     Active Substance: ADALIMUMAB
     Indication: PSORIASIS
     Dosage: 1 UNIT
     Route: 065

REACTIONS (4)
  - Drug administered at inappropriate site [Unknown]
  - Injection site pain [Unknown]
  - Injection site urticaria [Unknown]
  - Fear of injection [Unknown]

NARRATIVE: CASE EVENT DATE: 20150101
